FAERS Safety Report 19065041 (Version 2)
Quarter: 2021Q2

REPORT INFORMATION
  Report Type: Spontaneous
  Country: US (occurrence: US)
  Receive Date: 20210326
  Receipt Date: 20210426
  Transmission Date: 20210717
  Serious: Yes (Other)
  Sender: FDA-Public Use
  Company Number: US-BEH-2021129923

PATIENT
  Age: 58 Year
  Sex: Male

DRUGS (4)
  1. AVATROMBOPAG [Concomitant]
     Active Substance: AVATROMBOPAG
     Dosage: 40 MILLIGRAM (1 TABLET), TUESDAY, THURSDAY, SATURDAY, SUNDAY
     Route: 048
  2. HIZENTRA [Suspect]
     Active Substance: HUMAN IMMUNOGLOBULIN G
     Indication: IMMUNE THROMBOCYTOPENIA
  3. AVATROMBOPAG [Concomitant]
     Active Substance: AVATROMBOPAG
     Dosage: 40 MILLIGRAM (2 TABLETS), ON MONDAY, WEDNESDAY, FRIDAY
     Route: 048
  4. HIZENTRA [Suspect]
     Active Substance: HUMAN IMMUNOGLOBULIN G
     Indication: IMMUNODEFICIENCY COMMON VARIABLE
     Dosage: 20 GRAM, QOW
     Route: 058
     Dates: start: 20190416

REACTIONS (2)
  - Weight decreased [Unknown]
  - Splenectomy [Unknown]

NARRATIVE: CASE EVENT DATE: 20210208
